APPROVED DRUG PRODUCT: PROPRANOLOL HYDROCHLORIDE
Active Ingredient: PROPRANOLOL HYDROCHLORIDE
Strength: 10MG
Dosage Form/Route: TABLET;ORAL
Application: A078955 | Product #001 | TE Code: AB
Applicant: IPCA LABORATORIES LTD
Approved: Jun 2, 2008 | RLD: No | RS: No | Type: RX